FAERS Safety Report 7989947-7 (Version None)
Quarter: 2011Q4

REPORT INFORMATION
  Report Type: 
  Country: None (occurrence: None)
  Receive Date: 20111219
  Receipt Date: 20110909
  Transmission Date: 20120403
  Serious: No
  Sender: FDA-Public Use
  Company Number: US-ASTRAZENECA-2011SE54508

PATIENT
  Sex: Female

DRUGS (1)
  1. CRESTOR [Suspect]
     Route: 048

REACTIONS (10)
  - WEIGHT DECREASED [None]
  - LIMB DISCOMFORT [None]
  - BACK PAIN [None]
  - PAIN IN EXTREMITY [None]
  - RENAL PAIN [None]
  - DIABETES MELLITUS [None]
  - ACCIDENT [None]
  - MALAISE [None]
  - GAIT DISTURBANCE [None]
  - HEPATIC PAIN [None]
